FAERS Safety Report 8098503 (Version 28)
Quarter: 2016Q4

REPORT INFORMATION
  Report Type: Report from Study
  Country: CA (occurrence: CA)
  Receive Date: 20110819
  Receipt Date: 20161017
  Transmission Date: 20170207
  Serious: Yes (Other)
  Sender: FDA-Public Use
  Company Number: PHHY2011CA63599

PATIENT
  Age: 53 Year
  Sex: Female

DRUGS (2)
  1. SANDOSTATIN LAR DEPOT [Suspect]
     Active Substance: OCTREOTIDE ACETATE
     Indication: ACROMEGALY
     Dosage: 20 MG, QMO (EVERY 4 WEEKS)
     Route: 030
     Dates: start: 20110610
  2. ATENOLOL. [Concomitant]
     Active Substance: ATENOLOL
     Indication: PRODUCT USED FOR UNKNOWN INDICATION
     Route: 065

REACTIONS (11)
  - Blood pressure diastolic decreased [Unknown]
  - Blood pressure increased [Unknown]
  - Oropharyngeal pain [Recovering/Resolving]
  - Nausea [Unknown]
  - Injection site haemorrhage [Unknown]
  - Abdominal pain upper [Not Recovered/Not Resolved]
  - Dysphonia [Recovering/Resolving]
  - Heart rate decreased [Not Recovered/Not Resolved]
  - Injection site mass [Unknown]
  - Diarrhoea [Unknown]
  - Headache [Recovering/Resolving]

NARRATIVE: CASE EVENT DATE: 2013
